FAERS Safety Report 16862363 (Version 2)
Quarter: 2019Q4

REPORT INFORMATION
  Report Type: Report from Study
  Country: BR (occurrence: BR)
  Receive Date: 20190927
  Receipt Date: 20191228
  Transmission Date: 20200122
  Serious: Yes (Other)
  Sender: FDA-Public Use
  Company Number: BR-UCBSA-2019029404

PATIENT
  Sex: Female
  Weight: 75 kg

DRUGS (18)
  1. PREDNISONA [Suspect]
     Active Substance: PREDNISONE
     Indication: RHEUMATOID ARTHRITIS
     Dosage: 1 DOSAGE FORM, ONCE DAILY (QD)
     Route: 048
     Dates: start: 201912
  2. SINVASTATINA [Concomitant]
     Active Substance: SIMVASTATIN
     Indication: CARDIAC DISORDER
     Dosage: 1 DOSAGE FORM A DAY
     Route: 048
     Dates: start: 2014
  3. ATROVENT [Concomitant]
     Active Substance: IPRATROPIUM BROMIDE
     Indication: DYSPNOEA
     Dosage: 5 MILLIGRAM 2-3 TIMES A DAY (IN CRISIS)
     Dates: start: 201906
  4. AZULFIDINE [Concomitant]
     Active Substance: SULFASALAZINE
     Indication: RHEUMATOID ARTHRITIS
     Dosage: 500 MILLIGRAM, 2X/DAY (BID)
     Route: 048
  5. CARVEDILOL. [Concomitant]
     Active Substance: CARVEDILOL
     Indication: ARRHYTHMIA
     Dosage: 2 DOSAGE FORM A DAY
     Route: 048
     Dates: start: 2014
  6. VASTAREL [Concomitant]
     Active Substance: TRIMETAZIDINE DIHYDROCHLORIDE
     Indication: PRODUCT USED FOR UNKNOWN INDICATION
     Dosage: 2 TABLET A DAY
  7. ATLANSIL [AMIODARONE] [Concomitant]
     Indication: ARRHYTHMIA
     Dosage: 1 DOSAGE FORM A DAY
     Route: 048
     Dates: start: 2014
  8. AAS [Concomitant]
     Active Substance: ASPIRIN
     Indication: CARDIAC DISORDER
     Dosage: 1 DOSAGE FORM A DAY
     Route: 048
     Dates: start: 2014
  9. METHOTREXATO [METHOTREXATE SODIUM] [Concomitant]
     Indication: RHEUMATOID ARTHRITIS
     Dosage: 25 MILLIGRAM, WEEKLY (QW)
     Route: 048
     Dates: start: 2004
  10. CERTOLIZUMAB PEGOL RA [Suspect]
     Active Substance: CERTOLIZUMAB PEGOL
     Indication: RHEUMATOID ARTHRITIS
     Dosage: 200 MILLIGRAM, EV 2 WEEKS(QOW)
     Route: 058
     Dates: start: 2017, end: 20190717
  11. SPIRIVA [Concomitant]
     Active Substance: TIOTROPIUM BROMIDE MONOHYDRATE
     Indication: EMPHYSEMA
  12. OMEPRAZOLE. [Concomitant]
     Active Substance: OMEPRAZOLE
     Indication: PRODUCT USED FOR UNKNOWN INDICATION
     Dosage: 1 TABLET A DAY
  13. CLOPIDOGREL [Concomitant]
     Active Substance: CLOPIDOGREL BISULFATE
     Indication: CARDIAC DISORDER
     Dosage: 1 DOSAGE FORM A DAY
     Route: 048
     Dates: start: 2014
  14. METHOTREXATE. [Concomitant]
     Active Substance: METHOTREXATE
     Indication: RHEUMATOID ARTHRITIS
     Dosage: 6 TABLETS PER WEEK
     Route: 048
     Dates: start: 2004
  15. ALENIA [BUDESONIDE;FORMOTEROL FUMARATE] [Concomitant]
     Active Substance: BUDESONIDE\FORMOTEROL FUMARATE
     Indication: DYSPNOEA
     Dosage: 12 MILLIGRAM, 2X/DAY (BID)
     Route: 048
     Dates: start: 201906
  16. ALENIA [BUDESONIDE;FORMOTEROL FUMARATE] [Concomitant]
     Active Substance: BUDESONIDE\FORMOTEROL FUMARATE
     Indication: EMPHYSEMA
  17. METHOTREXATE. [Concomitant]
     Active Substance: METHOTREXATE
     Dosage: 6 DOSAGE FORM, WEEKLY (QW)
     Route: 048
  18. MONOCORDIL [Concomitant]
     Active Substance: ISOSORBIDE MONONITRATE
     Indication: CARDIAC DISORDER
     Dosage: 1 DOSAGE FORM, 2X/DAY (BID)
     Route: 048

REACTIONS (11)
  - Movement disorder [Unknown]
  - Emphysema [Recovered/Resolved]
  - Dyspnoea [Recovered/Resolved]
  - Application site laceration [Not Recovered/Not Resolved]
  - Unevaluable event [Unknown]
  - Swelling face [Not Recovered/Not Resolved]
  - Swelling [Not Recovered/Not Resolved]
  - Fatigue [Unknown]
  - Needle issue [Unknown]
  - Rheumatoid arthritis [Not Recovered/Not Resolved]
  - Application site pain [Recovered/Resolved]

NARRATIVE: CASE EVENT DATE: 2017
